FAERS Safety Report 8219540-2 (Version None)
Quarter: 2012Q1

REPORT INFORMATION
  Report Type: 
  Country: None (occurrence: None)
  Receive Date: 20120319
  Receipt Date: 20120307
  Transmission Date: 20120608
  Serious: Yes (Other)
  Sender: FDA-Public Use
  Company Number: JP-BRISTOL-MYERS SQUIBB COMPANY-16425027

PATIENT
  Age: 86 Year
  Sex: Male

DRUGS (4)
  1. ABILIFY [Suspect]
     Indication: HALLUCINATION, VISUAL
     Route: 048
  2. DONEPEZIL HCL [Concomitant]
     Dosage: DONEPEZIL HYDROCHLORIDE
  3. ABILIFY [Suspect]
     Indication: ABNORMAL BEHAVIOUR
     Route: 048
  4. ABILIFY [Suspect]
     Indication: DELUSION
     Route: 048

REACTIONS (1)
  - SUBARACHNOID HAEMORRHAGE [None]
